FAERS Safety Report 18864084 (Version 1)
Quarter: 2021Q1

REPORT INFORMATION
  Report Type: Spontaneous
  Country: NL (occurrence: NL)
  Receive Date: 20210209
  Receipt Date: 20210209
  Transmission Date: 20210420
  Serious: Yes (Hospitalization, Other)
  Sender: FDA-Public Use
  Company Number: NL-AUROBINDO-AUR-APL-2021-005061

PATIENT
  Age: 73 Year
  Sex: Female
  Weight: 70 kg

DRUGS (1)
  1. METRONIDAZOLE 500MG FILM?COATED TABLET [Suspect]
     Active Substance: METRONIDAZOLE
     Indication: RENAL ABSCESS
     Dosage: 500 MILLIGRAM, 3 TIMES A DAY
     Route: 065
     Dates: start: 20201123, end: 20201228

REACTIONS (3)
  - Encephalopathy [Recovering/Resolving]
  - Sedation [Recovering/Resolving]
  - Tonic clonic movements [Recovering/Resolving]

NARRATIVE: CASE EVENT DATE: 20201228
